FAERS Safety Report 5624250-1 (Version None)
Quarter: 2008Q1

REPORT INFORMATION
  Report Type: 
  Country: None (occurrence: None)
  Receive Date: 20080213
  Receipt Date: 20080131
  Transmission Date: 20080703
  Serious: Yes (Life-Threatening, Hospitalization)
  Sender: FDA-Public Use
  Company Number: ZA-ELI_LILLY_AND_COMPANY-ZA200802000104

PATIENT
  Sex: Female

DRUGS (10)
  1. CAPASTAT SULFATE [Suspect]
     Indication: TUBERCULOSIS
     Dosage: 1000 MG, DAILY (1/D)
     Route: 030
     Dates: start: 20071015, end: 20071120
  2. TERIZIDONE [Concomitant]
     Dosage: 750 MG, DAILY (1/D)
     Route: 048
  3. ETHAMBUTOL HYDROCHLORIDE [Concomitant]
     Dosage: 1.2 G, DAILY (1/D)
     Route: 048
  4. PYRAZINAMIDE [Concomitant]
     Dosage: 1.5 G, DAILY (1/D)
     Route: 048
  5. ETHIONAMIDE [Concomitant]
     Dosage: 750 MG, DAILY (1/D)
     Route: 048
  6. AUGMENTIN                               /SCH/ [Concomitant]
     Dosage: 1 G, 2/D
     Route: 048
  7. EPILIM [Concomitant]
     Dosage: 300 MG, 3/D
     Route: 048
  8. LAMIVUDINE [Concomitant]
     Dosage: UNK UNK, 2/D
     Route: 048
  9. EFAVIRENZ [Concomitant]
     Dosage: 600 MG, DAILY (1/D)
     Route: 048
  10. ZIDOVUDINE [Concomitant]
     Dosage: 300 MG, 2/D
     Route: 065

REACTIONS (3)
  - HYPOKALAEMIA [None]
  - RENAL FAILURE ACUTE [None]
  - VOMITING [None]
